FAERS Safety Report 4766481-9 (Version None)
Quarter: 2005Q3

REPORT INFORMATION
  Report Type: 
  Country: None (occurrence: None)
  Receive Date: 20050912
  Receipt Date: 20050902
  Transmission Date: 20060218
  Serious: Yes (Hospitalization)
  Sender: FDA-Public Use
  Company Number: US-JNJFOC-20050705510

PATIENT
  Sex: Female
  Weight: 3.88 kg

DRUGS (1)
  1. HALOPERIDOL DECANOATE [Suspect]
     Route: 064
     Dates: end: 20010901

REACTIONS (9)
  - AGITATION NEONATAL [None]
  - DIARRHOEA [None]
  - DIARRHOEA NEONATAL [None]
  - DRUG EXPOSURE DURING PREGNANCY [None]
  - DYSKINESIA [None]
  - GRAND MAL CONVULSION [None]
  - IRRITABILITY [None]
  - LATE METABOLIC ACIDOSIS OF NEWBORN [None]
  - METABOLIC ACIDOSIS [None]
